FAERS Safety Report 14068790 (Version 2)
Quarter: 2017Q4

REPORT INFORMATION
  Report Type: Spontaneous
  Country: RU (occurrence: RU)
  Receive Date: 20171010
  Receipt Date: 20171018
  Transmission Date: 20180321
  Serious: Yes (Other)
  Sender: FDA-Public Use
  Company Number: RU-ASTRAZENECA-2017SF01102

PATIENT
  Age: 63 Year
  Sex: Female
  Weight: 65 kg

DRUGS (6)
  1. L-THYROXIN [Concomitant]
     Active Substance: LEVOTHYROXINE SODIUM
  2. BRILINTA [Suspect]
     Active Substance: TICAGRELOR
     Indication: MYOCARDIAL INFARCTION
     Route: 048
     Dates: start: 20170210
  3. METFORMIN [Concomitant]
     Active Substance: METFORMIN HYDROCHLORIDE
  4. GUTTALAX [Concomitant]
  5. ENALAPRIL [Concomitant]
     Active Substance: ENALAPRIL
  6. ATORVASTATIN [Concomitant]
     Active Substance: ATORVASTATIN

REACTIONS (2)
  - Drug dose omission [Unknown]
  - Vascular stent occlusion [Not Recovered/Not Resolved]

NARRATIVE: CASE EVENT DATE: 20170630
